FAERS Safety Report 8616744-1 (Version None)
Quarter: 2012Q3

REPORT INFORMATION
  Report Type: 
  Country: None (occurrence: None)
  Receive Date: 20120823
  Receipt Date: 20120803
  Transmission Date: 20120928
  Serious: No
  Sender: FDA-Public Use
  Company Number: US-009507513-1208USA002585

PATIENT

DRUGS (1)
  1. NUVARING [Suspect]
     Indication: MENSTRUAL CYCLE MANAGEMENT
     Dosage: 1 DF, 3 WEEK IN 1 WEEK OUT
     Route: 067
     Dates: start: 20120501, end: 20120803

REACTIONS (2)
  - METRORRHAGIA [None]
  - MUSCLE SPASMS [None]
